FAERS Safety Report 16572531 (Version 1)
Quarter: 2019Q3

REPORT INFORMATION
  Report Type: Spontaneous
  Country: US (occurrence: US)
  Receive Date: 20190531
  Receipt Date: 20190531
  Transmission Date: 20191004
  Serious: Yes (Hospitalization)
  Sender: FDA-Public Use
  Company Number: None

PATIENT
  Age: 78 Year
  Sex: Male
  Weight: 102.6 kg

DRUGS (3)
  1. LENALIDOMIDE (CC-5013) [Suspect]
     Active Substance: LENALIDOMIDE
  2. VELCADE [Suspect]
     Active Substance: BORTEZOMIB
  3. DEXAMETHASONE (34521) [Suspect]
     Active Substance: DEXAMETHASONE
     Dates: end: 20190416

REACTIONS (4)
  - Gait inability [None]
  - Spinal stenosis [None]
  - Spinal claudication [None]
  - Muscular weakness [None]

NARRATIVE: CASE EVENT DATE: 20190528
